FAERS Safety Report 7763120-X (Version None)
Quarter: 2011Q3

REPORT INFORMATION
  Report Type: 
  Country: None (occurrence: None)
  Receive Date: 20110920
  Receipt Date: 20110909
  Transmission Date: 20111222
  Serious: Yes (Hospitalization)
  Sender: FDA-Public Use
  Company Number: PHHY2011JP77839

PATIENT
  Age: 62 Year
  Sex: Male

DRUGS (8)
  1. CARBAMAZEPINE [Suspect]
     Dosage: 200 MG-300 MG
  2. CARBAMAZEPINE [Suspect]
     Dosage: 200 MG/DAY
  3. CARBAMAZEPINE [Suspect]
     Dosage: 400 MG/DAY
  4. BUPIVACAINE HCL [Suspect]
     Indication: TRIGEMINAL NEURALGIA
     Dosage: 0.5 %, UNK
  5. CARBAMAZEPINE [Suspect]
     Indication: TRIGEMINAL NEURALGIA
     Dosage: UNK UKN, UNK
  6. CARBAMAZEPINE [Suspect]
     Dosage: 600 MG/DAY
  7. CARBAMAZEPINE [Suspect]
     Dosage: 800 MG/DAY
  8. AMITRIPTYLINE HYDROCHLORIDE [Suspect]
     Indication: TRIGEMINAL NEURALGIA
     Dosage: 35 MG/DAY

REACTIONS (4)
  - LIP PAIN [None]
  - DRUG INEFFECTIVE [None]
  - ORAL PAIN [None]
  - GINGIVAL PAIN [None]
